FAERS Safety Report 9929290 (Version 1)
Quarter: 2014Q1

REPORT INFORMATION
  Report Type: Spontaneous
  Country: JP (occurrence: JP)
  Receive Date: 20140227
  Receipt Date: 20140227
  Transmission Date: 20141002
  Serious: Yes (Other)
  Sender: FDA-Public Use
  Company Number: JP-GLAXOSMITHKLINE-B0972026A

PATIENT
  Age: 70 Year
  Sex: Female

DRUGS (10)
  1. ARZERRA [Suspect]
     Indication: CHRONIC LYMPHOCYTIC LEUKAEMIA
     Route: 042
     Dates: start: 20140127, end: 20140127
  2. ARZERRA [Suspect]
     Indication: CHRONIC LYMPHOCYTIC LEUKAEMIA
     Route: 042
     Dates: start: 20140210, end: 20140210
  3. ARZERRA [Suspect]
     Indication: CHRONIC LYMPHOCYTIC LEUKAEMIA
     Route: 042
     Dates: start: 20140217, end: 20140217
  4. PREDNISOLONE [Concomitant]
     Route: 065
     Dates: start: 20140127, end: 20140127
  5. PREDNISOLONE [Concomitant]
     Route: 065
     Dates: start: 20140210, end: 20140210
  6. ACETAMINOPHEN [Concomitant]
     Route: 065
     Dates: start: 20140127, end: 20140127
  7. ACETAMINOPHEN [Concomitant]
     Route: 065
     Dates: start: 20140210, end: 20140210
  8. UNKNOWN DRUG [Concomitant]
     Route: 065
     Dates: start: 20140127, end: 20140127
  9. UNKNOWN DRUG [Concomitant]
     Route: 065
     Dates: start: 20140210, end: 20140210
  10. UNKNOWN DRUG [Concomitant]
     Route: 065

REACTIONS (3)
  - Hypoxia [Recovered/Resolved]
  - Nasal congestion [Recovered/Resolved]
  - Pyrexia [Recovered/Resolved]
